FAERS Safety Report 5866799-2 (Version None)
Quarter: 2008Q3

REPORT INFORMATION
  Report Type: 
  Country: None (occurrence: None)
  Receive Date: 20080902
  Receipt Date: 20080814
  Transmission Date: 20090109
  Serious: Yes (Disabling, Other)
  Sender: FDA-Public Use
  Company Number: GB-BAYER-200824255GPV

PATIENT
  Age: 43 Year
  Sex: Male

DRUGS (1)
  1. ALEMTUZUMAB [Suspect]
     Indication: ANTI-NEUTROPHIL CYTOPLASMIC ANTIBODY POSITIVE VASCULITIS
     Route: 065

REACTIONS (5)
  - DIALYSIS [None]
  - GLOMERULONEPHRITIS RAPIDLY PROGRESSIVE [None]
  - NEPHRITIS AUTOIMMUNE [None]
  - RENAL FAILURE ACUTE [None]
  - RENAL TRANSPLANT [None]
